FAERS Safety Report 21766351 (Version 1)
Quarter: 2022Q4

REPORT INFORMATION
  Report Type: Spontaneous
  Country: US (occurrence: US)
  Receive Date: 20221222
  Receipt Date: 20221222
  Transmission Date: 20230113
  Serious: No
  Sender: FDA-Public Use
  Company Number: US-PFIZER INC-202201380412

PATIENT
  Age: 39 Year
  Sex: Male
  Weight: 73.48 kg

DRUGS (1)
  1. PAXLOVID [Suspect]
     Active Substance: NIRMATRELVIR\RITONAVIR
     Indication: COVID-19 treatment
     Dosage: 3 DF, 2X/DAY (2 DF NIRMATRELVIR 150MG , 1 DF RITONAVIR 100MG, 3 DF MORNING AND AT NIGHT)
     Dates: start: 20221211

REACTIONS (4)
  - Abnormal faeces [Unknown]
  - Decreased appetite [Not Recovered/Not Resolved]
  - Diarrhoea [Unknown]
  - Faeces pale [Unknown]

NARRATIVE: CASE EVENT DATE: 20221213
